FAERS Safety Report 4760111-8 (Version None)
Quarter: 2005Q3

REPORT INFORMATION
  Report Type: 
  Country: None (occurrence: None)
  Receive Date: 20050902
  Receipt Date: 20050513
  Transmission Date: 20060218
  Serious: No
  Sender: FDA-Public Use
  Company Number: US-GLAXOSMITHKLINE-A0560311A

PATIENT
  Age: 54 Year
  Sex: Female
  Weight: 101.8 kg

DRUGS (11)
  1. REQUIP [Suspect]
     Indication: RESTLESS LEGS SYNDROME
     Dosage: 2MG AT NIGHT
     Route: 048
     Dates: start: 20050406
  2. EFFEXOR [Concomitant]
  3. PREVACID [Concomitant]
  4. PROVIGIL [Concomitant]
  5. AVONEX [Concomitant]
  6. CALCIUM GLUCONATE [Concomitant]
  7. VITAMIN D [Concomitant]
  8. VITAMIN B6 [Concomitant]
  9. VITAMIN B-12 [Concomitant]
  10. LASIX [Concomitant]
  11. ALLEGRA [Concomitant]

REACTIONS (1)
  - OEDEMA [None]
